FAERS Safety Report 6193471-4 (Version None)
Quarter: 2009Q2

REPORT INFORMATION
  Report Type: 
  Country: None (occurrence: None)
  Receive Date: 20090518
  Receipt Date: 20090507
  Transmission Date: 20091009
  Serious: Yes (Death, Hospitalization)
  Sender: FDA-Public Use
  Company Number: GB-AMGEN-UK324550

PATIENT
  Sex: Female
  Weight: 89 kg

DRUGS (15)
  1. NEULASTA [Suspect]
     Indication: NEUTROPENIA
     Route: 058
     Dates: start: 20081214, end: 20081215
  2. MITOMYCIN [Concomitant]
     Route: 065
  3. MITOXANTRONE [Concomitant]
     Route: 065
  4. METHOTREXATE [Concomitant]
     Route: 065
  5. TINZAPARIN SODIUM [Concomitant]
     Route: 042
     Dates: start: 20081216, end: 20081219
  6. BLOOD CELLS, PACKED HUMAN [Concomitant]
     Route: 065
  7. PLATELETS [Concomitant]
     Route: 065
  8. LETROZOLE [Concomitant]
     Route: 048
     Dates: end: 20081221
  9. WARFARIN SODIUM [Concomitant]
     Route: 048
     Dates: end: 20081211
  10. CYCLIZINE [Concomitant]
     Route: 048
     Dates: end: 20081221
  11. OMEPRAZOLE [Concomitant]
     Route: 048
     Dates: start: 20081211, end: 20081221
  12. VITAMIN K [Concomitant]
     Route: 048
     Dates: end: 20081214
  13. MIDAZOLAM HCL [Concomitant]
     Route: 058
     Dates: start: 20081222, end: 20081223
  14. OXYNORM [Concomitant]
     Route: 058
     Dates: start: 20081222, end: 20081223
  15. ONDANSETRON [Concomitant]
     Route: 042
     Dates: start: 20081214

REACTIONS (4)
  - DEPRESSED LEVEL OF CONSCIOUSNESS [None]
  - DRUG ADMINISTRATION ERROR [None]
  - MALIGNANT NEOPLASM PROGRESSION [None]
  - MULTI-ORGAN FAILURE [None]
